FAERS Safety Report 9160314 (Version 1)
Quarter: 2013Q1

REPORT INFORMATION
  Report Type: Spontaneous
  Country: US (occurrence: US)
  Receive Date: 20130313
  Receipt Date: 20130313
  Transmission Date: 20140127
  Serious: No
  Sender: FDA-Public Use
  Company Number: US-BAYER-2013-029454

PATIENT
  Age: 62 Year
  Sex: Female
  Weight: 91 kg

DRUGS (1)
  1. ALEVE CAPLET/TABLET,MIDOL EXTENDED RELIEF CAPLET [Suspect]
     Indication: ANALGESIC THERAPY
     Dosage: 1 DF, EVERY 5 HOURS
     Route: 048
     Dates: start: 201302

REACTIONS (3)
  - Pain [Not Recovered/Not Resolved]
  - Overdose [None]
  - Incorrect drug administration duration [None]
